FAERS Safety Report 14097323 (Version 1)
Quarter: 2017Q4

REPORT INFORMATION
  Report Type: Spontaneous
  Country: GB (occurrence: GB)
  Receive Date: 20171017
  Receipt Date: 20171017
  Transmission Date: 20180321
  Serious: Yes (Hospitalization, Other)
  Sender: FDA-Public Use
  Company Number: GB-ACCORD-046888

PATIENT
  Age: 34 Year
  Sex: Female

DRUGS (24)
  1. MEROPENEM. [Concomitant]
     Active Substance: MEROPENEM
     Route: 042
  2. METRONIDAZOLE. [Concomitant]
     Active Substance: METRONIDAZOLE
     Route: 042
  3. ENOXAPARIN [Concomitant]
     Active Substance: ENOXAPARIN
     Route: 058
  4. ATENOLOL/ATENOLOL HYDROCHLORIDE [Concomitant]
     Route: 048
  5. LACTULOSE. [Concomitant]
     Active Substance: LACTULOSE
     Route: 048
  6. POTASSIUM [Concomitant]
     Active Substance: POTASSIUM
     Dosage: 30 MMOL
     Route: 051
  7. FUROSEMIDE. [Suspect]
     Active Substance: FUROSEMIDE
     Indication: PRODUCT USED FOR UNKNOWN INDICATION
     Route: 048
  8. OMEPRAZOLE. [Concomitant]
     Active Substance: OMEPRAZOLE
     Route: 048
  9. SODIUM [Concomitant]
     Active Substance: SODIUM
     Dosage: 50 MMOL
     Route: 051
  10. LINEZOLID. [Concomitant]
     Active Substance: LINEZOLID
  11. SODIUM BICARBONATE. [Suspect]
     Active Substance: SODIUM BICARBONATE
     Indication: PRODUCT USED FOR UNKNOWN INDICATION
  12. AMLODIPINE [Concomitant]
     Active Substance: AMLODIPINE BESYLATE
     Route: 048
  13. PARACETAMOL [Suspect]
     Active Substance: ACETAMINOPHEN
     Indication: PRODUCT USED FOR UNKNOWN INDICATION
     Dosage: 1 G FOUR TIMES PER DAY FOR AT LEAST 7 DAYS (AND USUALLY FOR SEVERAL WEEKS)
     Route: 048
  14. SENNA ALEXANDRINA [Concomitant]
     Active Substance: SENNA LEAF
     Route: 048
  15. DOMPERIDONE [Concomitant]
     Active Substance: DOMPERIDONE
     Route: 048
  16. ANIDULAFUNGIN [Concomitant]
     Active Substance: ANIDULAFUNGIN
  17. DAPTOMYCIN. [Concomitant]
     Active Substance: DAPTOMYCIN
  18. GENTAMICIN. [Concomitant]
     Active Substance: GENTAMICIN
     Route: 042
  19. FOLIC ACID. [Concomitant]
     Active Substance: FOLIC ACID
     Route: 048
  20. SELENIUM [Concomitant]
     Active Substance: SELENIUM
     Route: 048
  21. VANCOMYCIN [Concomitant]
     Active Substance: VANCOMYCIN
     Route: 042
  22. ERYTHROPOIETIN [Concomitant]
     Active Substance: ERYTHROPOIETIN
     Route: 058
  23. FLUCONAZOLE. [Concomitant]
     Active Substance: FLUCONAZOLE
     Route: 048
  24. RAMIPRIL. [Concomitant]
     Active Substance: RAMIPRIL
     Route: 048

REACTIONS (4)
  - Metabolic acidosis [Not Recovered/Not Resolved]
  - Pulmonary embolism [Unknown]
  - Respiratory alkalosis [Unknown]
  - Metabolic alkalosis [Not Recovered/Not Resolved]
